FAERS Safety Report 19396672 (Version 1)
Quarter: 2021Q2

REPORT INFORMATION
  Report Type: Spontaneous
  Country: DE (occurrence: DE)
  Receive Date: 20210609
  Receipt Date: 20210609
  Transmission Date: 20210717
  Serious: Yes (Hospitalization)
  Sender: FDA-Public Use
  Company Number: DE-PFIZER INC-2021627427

PATIENT
  Age: 69 Year
  Sex: Female

DRUGS (1)
  1. METHOTREXATE SODIUM. [Suspect]
     Active Substance: METHOTREXATE SODIUM
     Dosage: 12.5 MG, MONDAYS
     Route: 048

REACTIONS (5)
  - Limb discomfort [Unknown]
  - Memory impairment [Unknown]
  - Pain in extremity [Unknown]
  - Dizziness [Unknown]
  - Vision blurred [Unknown]
